FAERS Safety Report 24160176 (Version 1)
Quarter: 2024Q3

REPORT INFORMATION
  Report Type: Spontaneous
  Country: US (occurrence: US)
  Receive Date: 20240801
  Receipt Date: 20240801
  Transmission Date: 20241016
  Serious: No
  Sender: LEO PHARM
  Company Number: US-LEO Pharma-372396

PATIENT
  Age: 44 Year
  Sex: Male

DRUGS (1)
  1. ADBRY [Suspect]
     Active Substance: TRALOKINUMAB-LDRM
     Indication: Dermatitis atopic
     Dosage: THERAPY REPORTED AS ONGOING
     Dates: start: 202303

REACTIONS (2)
  - Injection site erythema [Unknown]
  - Injection site discomfort [Recovered/Resolved]
